FAERS Safety Report 12616062 (Version 3)
Quarter: 2016Q3

REPORT INFORMATION
  Report Type: Spontaneous
  Country: US (occurrence: US)
  Receive Date: 20160802
  Receipt Date: 20160913
  Transmission Date: 20161109
  Serious: Yes (Life-Threatening, Other)
  Sender: FDA-Public Use
  Company Number: US-009507513-1607USA011004

PATIENT
  Age: 57 Year
  Sex: Male

DRUGS (2)
  1. STROMECTOL [Suspect]
     Active Substance: IVERMECTIN
     Indication: HELMINTHIC INFECTION
     Dosage: 1 TABLET OF 3 MG EVERY 8TH DAY
     Route: 048
     Dates: start: 20160702
  2. METHYLPRED ORAL [Concomitant]

REACTIONS (2)
  - Cestode infection [Not Recovered/Not Resolved]
  - Drug ineffective [Not Recovered/Not Resolved]

NARRATIVE: CASE EVENT DATE: 20160725
